FAERS Safety Report 23734249 (Version 1)
Quarter: 2024Q2

REPORT INFORMATION
  Report Type: Spontaneous
  Country: PL (occurrence: PL)
  Receive Date: 20240412
  Receipt Date: 20240412
  Transmission Date: 20240715
  Serious: Yes (Life-Threatening, Other)
  Sender: FDA-Public Use
  Company Number: PL-BRISTOL-MYERS SQUIBB COMPANY-2024-055644

PATIENT
  Sex: Male

DRUGS (1)
  1. ONUREG [Suspect]
     Active Substance: AZACITIDINE
     Indication: Acute myeloid leukaemia
     Dosage: DOSE : 300 MG;     FREQ : UNAVAILABLE

REACTIONS (9)
  - Pancytopenia [Unknown]
  - Pneumonia [Unknown]
  - Respiratory failure [Unknown]
  - Circulatory collapse [Unknown]
  - Gastrointestinal obstruction [Unknown]
  - Pancreatitis acute [Unknown]
  - Quadriparesis [Unknown]
  - Vomiting [Unknown]
  - Polyneuropathy [Unknown]
